FAERS Safety Report 13134735 (Version 1)
Quarter: 2017Q1

REPORT INFORMATION
  Report Type: Spontaneous
  Country: JP (occurrence: JP)
  Receive Date: 20170120
  Receipt Date: 20170120
  Transmission Date: 20170428
  Serious: Yes (Other)
  Sender: FDA-Public Use
  Company Number: JP-PFIZER INC-2017022735

PATIENT

DRUGS (3)
  1. SELARA [Suspect]
     Active Substance: EPLERENONE
     Route: 048
  2. MICARDIS [Suspect]
     Active Substance: TELMISARTAN
     Route: 048
  3. NORVASC [Suspect]
     Active Substance: AMLODIPINE BESYLATE
     Route: 048

REACTIONS (1)
  - Renal impairment [Unknown]
